FAERS Safety Report 18534446 (Version 1)
Quarter: 2020Q4

REPORT INFORMATION
  Report Type: Report from Study
  Country: US (occurrence: US)
  Receive Date: 20201123
  Receipt Date: 20201123
  Transmission Date: 20210114
  Serious: Yes (Other)
  Sender: FDA-Public Use
  Company Number: US-JNJFOC-20201128127

PATIENT
  Age: 60 Year
  Sex: Female

DRUGS (3)
  1. SPRAVATO [Suspect]
     Active Substance: ESKETAMINE
     Dosage: 84MG, 10 TOTAL DOSES
     Dates: start: 20200727, end: 20201001
  2. SPRAVATO [Suspect]
     Active Substance: ESKETAMINE
     Dosage: 84MG
     Dates: start: 20201105, end: 20201105
  3. SPRAVATO [Suspect]
     Active Substance: ESKETAMINE
     Indication: DEPRESSION
     Dates: start: 20200730, end: 20200730

REACTIONS (3)
  - Dissociation [Recovered/Resolved]
  - Bladder spasm [Not Recovered/Not Resolved]
  - Micturition urgency [Not Recovered/Not Resolved]

NARRATIVE: CASE EVENT DATE: 20201105
